FAERS Safety Report 8308456-9 (Version None)
Quarter: 2012Q2

REPORT INFORMATION
  Report Type: 
  Country: None (occurrence: None)
  Receive Date: 20120424
  Receipt Date: 20120419
  Transmission Date: 20120825
  Serious: Yes (Other)
  Sender: FDA-Public Use
  Company Number: BR-ROCHE-1061599

PATIENT
  Sex: Female
  Weight: 85 kg

DRUGS (4)
  1. ACTEMRA [Suspect]
     Indication: RHEUMATOID ARTHRITIS
     Route: 042
     Dates: start: 20110503, end: 20111117
  2. PREDNISONE TAB [Concomitant]
  3. LOSARTAN [Concomitant]
  4. ACETAMINOPHEN W/ CODEINE TAB [Concomitant]

REACTIONS (1)
  - RENAL FAILURE [None]
